APPROVED DRUG PRODUCT: BENZTROPINE MESYLATE
Active Ingredient: BENZTROPINE MESYLATE
Strength: 2MG
Dosage Form/Route: TABLET;ORAL
Application: A040715 | Product #003 | TE Code: AA
Applicant: PH HEALTH LTD
Approved: Aug 27, 2007 | RLD: No | RS: No | Type: RX